FAERS Safety Report 10548894 (Version 1)
Quarter: 2014Q4

REPORT INFORMATION
  Report Type: Spontaneous
  Country: DE (occurrence: DE)
  Receive Date: 20141028
  Receipt Date: 20141028
  Transmission Date: 20150529
  Serious: Yes (Congenital Anomaly)
  Sender: FDA-Public Use
  Company Number: GXKR2014DE003949

PATIENT

DRUGS (3)
  1. SEROQUEL [Suspect]
     Active Substance: QUETIAPINE FUMARATE
     Indication: SCHIZOPHRENIA
     Dosage: 600 [MG/D ]/ DOSAGE BETWEEN 500 AND 600 MG/D
     Route: 064
     Dates: start: 20080909, end: 20090121
  2. SERTRALINE [Suspect]
     Active Substance: SERTRALINE HYDROCHLORIDE
     Indication: SCHIZOPHRENIA
     Dosage: 100 [MG/D ]
     Route: 064
     Dates: start: 20080909, end: 20081215
  3. CYTOTEC [Concomitant]
     Active Substance: MISOPROSTOL
     Indication: ABORTION INDUCED
     Route: 064
     Dates: start: 20090121, end: 20090121

REACTIONS (3)
  - Congenital choroid plexus cyst [Not Recovered/Not Resolved]
  - Arnold-Chiari malformation [Not Recovered/Not Resolved]
  - Spina bifida [Not Recovered/Not Resolved]
